FAERS Safety Report 9439380 (Version 4)
Quarter: 2014Q2

REPORT INFORMATION
  Report Type: Report from Study
  Country: CA (occurrence: CA)
  Receive Date: 20130805
  Receipt Date: 20140527
  Transmission Date: 20141212
  Serious: Yes (Other)
  Sender: FDA-Public Use
  Company Number: CA-ROCHE-1247407

PATIENT
  Sex: Female
  Weight: 57.6 kg

DRUGS (10)
  1. ACTEMRA [Suspect]
     Indication: RHEUMATOID ARTHRITIS
     Route: 042
     Dates: start: 20130415
  2. ACTEMRA [Suspect]
     Dosage: DATE OF LAST INFUSION: 20/MAR/2014
     Route: 042
     Dates: start: 20130509
  3. OXYCONTIN [Concomitant]
  4. ASPIRIN [Concomitant]
     Route: 065
  5. VALSARTAN [Concomitant]
  6. RABEPRAZOLE [Concomitant]
  7. CRESTOR [Concomitant]
  8. VITAMIN C [Concomitant]
  9. OMEGA 3 [Concomitant]
  10. CHLOROQUINE [Concomitant]

REACTIONS (2)
  - Shoulder operation [Unknown]
  - Surgery [Unknown]
